FAERS Safety Report 21015781 (Version 1)
Quarter: 2022Q2

REPORT INFORMATION
  Report Type: Report from Study
  Country: FR (occurrence: FR)
  Receive Date: 20220628
  Receipt Date: 20220628
  Transmission Date: 20220721
  Serious: Yes (Hospitalization, Other)
  Sender: FDA-Public Use
  Company Number: FR-TAKEDA-2022TUS043017

PATIENT
  Age: 47 Year
  Sex: Male

DRUGS (12)
  1. TEDUGLUTIDE [Suspect]
     Active Substance: TEDUGLUTIDE
     Indication: Short-bowel syndrome
     Dosage: 3.6 MILLIGRAM, QD
     Route: 042
     Dates: start: 20200207, end: 20200805
  2. TEDUGLUTIDE [Suspect]
     Active Substance: TEDUGLUTIDE
     Indication: Short-bowel syndrome
     Dosage: 3.6 MILLIGRAM, QD
     Route: 042
     Dates: start: 20200207, end: 20200805
  3. TEDUGLUTIDE [Suspect]
     Active Substance: TEDUGLUTIDE
     Indication: Short-bowel syndrome
     Dosage: 3.6 MILLIGRAM, QD
     Route: 042
     Dates: start: 20200207, end: 20200805
  4. TEDUGLUTIDE [Suspect]
     Active Substance: TEDUGLUTIDE
     Indication: Short-bowel syndrome
     Dosage: 3.6 MILLIGRAM, QD
     Route: 042
     Dates: start: 20200207, end: 20200805
  5. TEDUGLUTIDE [Suspect]
     Active Substance: TEDUGLUTIDE
     Dosage: 3.8 MILLIGRAM, QD
     Route: 042
     Dates: start: 20200806
  6. TEDUGLUTIDE [Suspect]
     Active Substance: TEDUGLUTIDE
     Dosage: 3.8 MILLIGRAM, QD
     Route: 042
     Dates: start: 20200806
  7. TEDUGLUTIDE [Suspect]
     Active Substance: TEDUGLUTIDE
     Dosage: 3.8 MILLIGRAM, QD
     Route: 042
     Dates: start: 20200806
  8. TEDUGLUTIDE [Suspect]
     Active Substance: TEDUGLUTIDE
     Dosage: 3.8 MILLIGRAM, QD
     Route: 042
     Dates: start: 20200806
  9. VITAMIN C [Concomitant]
     Active Substance: ASCORBIC ACID
     Indication: Vitamin C deficiency
     Dosage: 1 DOSAGE FORM
     Route: 065
     Dates: start: 20200312
  10. IRON [Concomitant]
     Active Substance: IRON
     Indication: Anaemia
     Dosage: 1 DOSAGE FORM
     Route: 065
     Dates: start: 202001
  11. PHLOROGLUCINOL [Concomitant]
     Active Substance: PHLOROGLUCINOL
     Indication: Pain prophylaxis
     Dosage: 1 DOSAGE FORM
     Route: 048
  12. ACETAMINOPHEN [Concomitant]
     Active Substance: ACETAMINOPHEN
     Indication: Pain prophylaxis
     Dosage: 1 GRAM
     Route: 048

REACTIONS (1)
  - Vascular device infection [Recovered/Resolved]

NARRATIVE: CASE EVENT DATE: 20220328
